FAERS Safety Report 5139138-2 (Version None)
Quarter: 2006Q4

REPORT INFORMATION
  Report Type: 
  Country: None (occurrence: None)
  Receive Date: 20061030
  Receipt Date: 20060628
  Transmission Date: 20070319
  Serious: No
  Sender: FDA-Public Use
  Company Number: US-GLAXOSMITHKLINE-A0610638A

PATIENT
  Age: 71 Year
  Sex: Male

DRUGS (7)
  1. ADVAIR HFA [Suspect]
     Indication: CHRONIC OBSTRUCTIVE PULMONARY DISEASE
     Route: 055
     Dates: start: 20060613
  2. COMBIVENT [Concomitant]
  3. CYTOXAN [Concomitant]
  4. NIPENT [Concomitant]
  5. RITUXAN [Concomitant]
  6. PREDNISONE TAB [Concomitant]
  7. CLARITHROMYCIN [Concomitant]

REACTIONS (1)
  - RASH [None]
